FAERS Safety Report 10802655 (Version 4)
Quarter: 2015Q2

REPORT INFORMATION
  Report Type: Spontaneous
  Country: US (occurrence: US)
  Receive Date: 20150217
  Receipt Date: 20150424
  Transmission Date: 20150821
  Serious: Yes (Hospitalization, Other)
  Sender: FDA-Public Use
  Company Number: US-PFIZER INC-2015056597

PATIENT
  Age: 66 Year
  Sex: Female
  Weight: 137 kg

DRUGS (1)
  1. DETROL LA [Suspect]
     Active Substance: TOLTERODINE TARTRATE
     Indication: HYPERTONIC BLADDER
     Dosage: 8 MG, 2X/DAY

REACTIONS (7)
  - Lymphoedema [Unknown]
  - Urinary tract infection [Recovering/Resolving]
  - Decubitus ulcer [Unknown]
  - Hypertension [Not Recovered/Not Resolved]
  - Gait disturbance [Unknown]
  - Cerebrovascular accident [Unknown]
  - Incorrect dose administered [Not Recovered/Not Resolved]

NARRATIVE: CASE EVENT DATE: 2000
